FAERS Safety Report 8764936 (Version 1)
Quarter: 2012Q4

REPORT INFORMATION
  Report Type: 
  Country: JO (occurrence: JO)
  Receive Date: 20120902
  Receipt Date: 20120902
  Transmission Date: 20130627
  Serious: Yes (Other)
  Sender: FDA-Public Use
  Company Number: JO-MYLANLABS-2012S1017323

PATIENT
  Age: 4 Month
  Sex: Male

DRUGS (2)
  1. WARFARIN [Suspect]
     Route: 065
  2. PIMPINELLA ANISUM [Interacting]
     Route: 065

REACTIONS (2)
  - Haematuria [Unknown]
  - Drug interaction [Unknown]
